FAERS Safety Report 7239183-7 (Version None)
Quarter: 2011Q1

REPORT INFORMATION
  Report Type: 
  Country: None (occurrence: None)
  Receive Date: 20110121
  Receipt Date: 20091014
  Transmission Date: 20110831
  Serious: Yes (Other)
  Sender: FDA-Public Use
  Company Number: PHHY2009JP67093

PATIENT
  Age: 24 Year
  Sex: Female

DRUGS (3)
  1. MYCOPHENOLATE MOFETIL [Concomitant]
  2. METHYLPREDNISOLONE ACETATE [Concomitant]
  3. CYCLOSPORINE [Suspect]
     Indication: STEM CELL TRANSPLANT

REACTIONS (8)
  - PANCYTOPENIA [None]
  - LIVER DISORDER [None]
  - BONE MARROW FAILURE [None]
  - IRON OVERLOAD [None]
  - BLUNTED AFFECT [None]
  - DEPRESSION [None]
  - MULTI-ORGAN DISORDER [None]
  - CYSTITIS HAEMORRHAGIC [None]
